FAERS Safety Report 22089619 (Version 1)
Quarter: 2023Q1

REPORT INFORMATION
  Report Type: Spontaneous
  Country: SE (occurrence: SE)
  Receive Date: 20230313
  Receipt Date: 20230313
  Transmission Date: 20230417
  Serious: Yes (Hospitalization, Disabling)
  Sender: FDA-Public Use
  Company Number: None

PATIENT
  Age: 65 Year
  Sex: Female
  Weight: 59 kg

DRUGS (3)
  1. PIQRAY [Suspect]
     Active Substance: ALPELISIB
     Indication: Breast cancer metastatic
     Dosage: 300 MG, QD (150 MG, 2X1)
     Route: 048
     Dates: start: 20221129, end: 20221226
  2. INNOHEP [Concomitant]
     Active Substance: TINZAPARIN SODIUM
     Indication: Product used for unknown indication
     Dosage: 14 000 ANTI-XA IE, 14000 ENH X1
     Route: 058
     Dates: start: 20210302, end: 20221226
  3. FASLODEX [Concomitant]
     Active Substance: FULVESTRANT
     Indication: Product used for unknown indication
     Dosage: 500 MG, Q4W (250 MG, 2 X 250 MG IM VAR FJARDE VECKA)
     Route: 030
     Dates: start: 20221128, end: 20221226

REACTIONS (1)
  - Haematoma muscle [Recovered/Resolved with Sequelae]

NARRATIVE: CASE EVENT DATE: 20221224
